FAERS Safety Report 8563502-2 (Version None)
Quarter: 2012Q3

REPORT INFORMATION
  Report Type: 
  Country: None (occurrence: None)
  Receive Date: 20120802
  Receipt Date: 20120730
  Transmission Date: 20120928
  Serious: Yes (Hospitalization, Other)
  Sender: FDA-Public Use
  Company Number: FR-009507513-1204USA00893

PATIENT

DRUGS (21)
  1. ASPIRIN [Concomitant]
     Dosage: 75 MG, QD
     Route: 048
  2. ACETAMINOPHEN [Concomitant]
     Indication: PAIN
     Dosage: 1 G, QID
  3. CLOPIDOGREL [Concomitant]
     Dosage: 75 MG, QD
  4. EPOETIN [Concomitant]
     Indication: ANAEMIA
     Dosage: 1 VIAL EVEY 15 DAYS
     Dates: start: 20110601, end: 20120101
  5. DIAMICRON [Suspect]
     Dosage: 60 MG, QD
     Dates: start: 20120209
  6. LANTUS [Concomitant]
     Dates: start: 20110601, end: 20120209
  7. HUMALOG [Concomitant]
     Dates: start: 20110601, end: 20120209
  8. NEXIUM [Concomitant]
     Dosage: 20 MG, QD
     Dates: start: 20110701
  9. IMOVANE [Concomitant]
     Dosage: 1 DOSAGE FORM
  10. DIAMICRON [Suspect]
     Indication: TYPE 2 DIABETES MELLITUS
     Dosage: INCREASED
     Route: 048
     Dates: start: 20120109, end: 20120208
  11. MAG 2 [Suspect]
     Indication: MINERAL SUPPLEMENTATION
     Dosage: 2 DF, QD
     Route: 048
     Dates: start: 20111224, end: 20120106
  12. POLYETHYLENE GLYCOL [Concomitant]
     Indication: CONSTIPATION
     Dosage: ONE SACHET
  13. ARANESP [Suspect]
     Indication: ANAEMIA
     Dosage: 30 ?G, QW
     Route: 058
     Dates: start: 20111025, end: 20120116
  14. AMLODIPINE [Concomitant]
     Dosage: 5 MG, QD
  15. NITRODERM [Concomitant]
     Dosage: 1 PATCH
  16. PRAVASTATIN SODIUM [Suspect]
     Indication: DYSLIPIDAEMIA
     Dosage: 20 MG, BID
     Route: 048
     Dates: start: 20111224
  17. MK-0805 [Concomitant]
     Dosage: 40 MG, BID
  18. PERINDOPRIL ERBUMINE [Concomitant]
     Dosage: 4 MG, QD
  19. INVANZ [Suspect]
     Indication: INFECTION
     Dosage: 1 G, QD
     Route: 030
     Dates: start: 20111226, end: 20120116
  20. OXYCODONE HCL [Concomitant]
     Indication: PAIN
     Dosage: 5 MG, QD
  21. VITAMIN D [Concomitant]
     Dosage: ONE VIAL EVERY 15 DAYS

REACTIONS (1)
  - PANCYTOPENIA [None]
